FAERS Safety Report 6507022-5 (Version None)
Quarter: 2009Q4

REPORT INFORMATION
  Report Type: 
  Country: None (occurrence: None)
  Receive Date: 20091221
  Receipt Date: 20091216
  Transmission Date: 20100525
  Serious: Yes (Hospitalization)
  Sender: FDA-Public Use
  Company Number: US-ELI_LILLY_AND_COMPANY-US200911006325

PATIENT
  Age: 70 Year
  Sex: Female

DRUGS (8)
  1. BYETTA [Suspect]
     Indication: TYPE 2 DIABETES MELLITUS
     Dosage: 5 UG, 2/D
     Route: 058
     Dates: start: 20090806, end: 20090901
  2. BYETTA [Suspect]
     Dosage: 10 UG, UNKNOWN
     Route: 058
     Dates: start: 20090901, end: 20091103
  3. HUMALOG [Concomitant]
     Dosage: UNK, UNK
     Dates: end: 20090101
  4. GLIPIZIDE [Concomitant]
     Dates: end: 20090901
  5. METFORMIN HCL [Concomitant]
     Dosage: 1000 MG, 2/D
  6. LISINOPRIL [Concomitant]
     Dosage: 5 MG, DAILY (1/D)
  7. ZOCOR [Concomitant]
     Dosage: 40 MG, DAILY (1/D)
  8. PRILOSEC [Concomitant]
     Dosage: 20 MG, DAILY (1/D)

REACTIONS (3)
  - BLOOD GLUCOSE DECREASED [None]
  - PANCREATITIS [None]
  - WEIGHT DECREASED [None]
